FAERS Safety Report 7261433-1 (Version None)
Quarter: 2011Q1

REPORT INFORMATION
  Report Type: 
  Country: None (occurrence: None)
  Receive Date: 20110130
  Receipt Date: 20100929
  Transmission Date: 20110831
  Serious: No
  Sender: FDA-Public Use
  Company Number: US-ABBOTT-10P-163-0674916-00

PATIENT
  Sex: Male
  Weight: 90.8 kg

DRUGS (1)
  1. HUMIRA [Suspect]
     Indication: CROHN'S DISEASE
     Dosage: TOOK 4-2-2
     Dates: start: 20100815

REACTIONS (3)
  - OROPHARYNGEAL PAIN [None]
  - DYSPHONIA [None]
  - INCORRECT DOSE ADMINISTERED [None]
